FAERS Safety Report 7337185-3 (Version None)
Quarter: 2011Q1

REPORT INFORMATION
  Report Type: 
  Country: None (occurrence: None)
  Receive Date: 20110308
  Receipt Date: 20110304
  Transmission Date: 20110831
  Serious: No
  Sender: FDA-Public Use
  Company Number: US-PFIZER INC-2011048303

PATIENT
  Sex: Female

DRUGS (1)
  1. ADVIL LIQUI-GELS [Suspect]
     Dosage: 20 MG, UNK
     Route: 048
     Dates: start: 20110304, end: 20110304

REACTIONS (3)
  - ORAL DISCOMFORT [None]
  - HYPOAESTHESIA ORAL [None]
  - INTENTIONAL DRUG MISUSE [None]
